FAERS Safety Report 10972030 (Version 1)
Quarter: 2015Q1

REPORT INFORMATION
  Report Type: Spontaneous
  Country: GB (occurrence: GB)
  Receive Date: 20150331
  Receipt Date: 20150331
  Transmission Date: 20150721
  Serious: Yes (Other)
  Sender: FDA-Public Use
  Company Number: PHHY2015GB034805

PATIENT
  Age: 20 Year
  Sex: Female
  Weight: 58 kg

DRUGS (1)
  1. CETIRIZINE [Suspect]
     Active Substance: CETIRIZINE HYDROCHLORIDE
     Indication: DERMATITIS ALLERGIC
     Dosage: 10 MG, QD (BEFORE SLEEP)
     Route: 048
     Dates: start: 20150310, end: 20150312

REACTIONS (6)
  - Hypersomnia [Unknown]
  - Oropharyngeal pain [Not Recovered/Not Resolved]
  - Somnolence [Not Recovered/Not Resolved]
  - Headache [Recovered/Resolved with Sequelae]
  - Fatigue [Not Recovered/Not Resolved]
  - Dry mouth [Recovered/Resolved with Sequelae]

NARRATIVE: CASE EVENT DATE: 20150311
